FAERS Safety Report 7563945-X (Version None)
Quarter: 2011Q2

REPORT INFORMATION
  Report Type: 
  Country: None (occurrence: None)
  Receive Date: 20110622
  Receipt Date: 20110615
  Transmission Date: 20111010
  Serious: Yes (Other)
  Sender: FDA-Public Use
  Company Number: FR-PFIZER INC-2011109931

PATIENT
  Age: 62 Year
  Sex: Male
  Weight: 95 kg

DRUGS (2)
  1. SUTENT [Suspect]
     Indication: RENAL CANCER METASTATIC
     Dosage: 50 MG, UNK
     Route: 048
     Dates: start: 20080601, end: 20090201
  2. SUTENT [Suspect]
     Dosage: 37.5 MG, UNK
     Route: 048
     Dates: start: 20090301

REACTIONS (9)
  - SUBCUTANEOUS HAEMATOMA [None]
  - BACK PAIN [None]
  - HYPERTHYROIDISM [None]
  - BLOOD IRON INCREASED [None]
  - MYOCARDIAL INFARCTION [None]
  - NAUSEA [None]
  - VOMITING [None]
  - MUSCULOSKELETAL STIFFNESS [None]
  - FATIGUE [None]
